APPROVED DRUG PRODUCT: METHYLDOPA
Active Ingredient: METHYLDOPA
Strength: 250MG
Dosage Form/Route: TABLET;ORAL
Application: N018934 | Product #001
Applicant: CHARTWELL RX SCIENCES LLC
Approved: Jun 29, 1984 | RLD: No | RS: No | Type: DISCN